FAERS Safety Report 4414386-5 (Version None)
Quarter: 2004Q3

REPORT INFORMATION
  Report Type: 
  Country: None (occurrence: None)
  Receive Date: 20040701
  Receipt Date: 20030512
  Transmission Date: 20050211
  Serious: Yes (Hospitalization)
  Sender: FDA-Public Use
  Company Number: VISP-PR-0305S-0149(0)

PATIENT
  Age: 57 Year
  Sex: Male

DRUGS (2)
  1. VISIPAQUE [Suspect]
     Indication: CARDIAC OPERATION
     Dosage: , SINGLE DOSE, I.A.
     Dates: start: 20030328, end: 20030328
  2. OXYGEN [Concomitant]

REACTIONS (1)
  - HYPERSENSITIVITY [None]
